FAERS Safety Report 9867954 (Version 2)
Quarter: 2014Q1

REPORT INFORMATION
  Report Type: Report from Study
  Country: JP (occurrence: JP)
  Receive Date: 20140204
  Receipt Date: 20140204
  Transmission Date: 20141002
  Serious: Yes (Death)
  Sender: FDA-Public Use
  Company Number: JP-PFIZER INC-2013315188

PATIENT
  Age: 68 Year
  Sex: Male
  Weight: 62 kg

DRUGS (11)
  1. XALKORI [Suspect]
     Indication: NON-SMALL CELL LUNG CANCER
     Dosage: 200 MG, 2X/DAY
     Route: 048
     Dates: start: 20130206, end: 20130312
  2. GLYCYRON [Concomitant]
     Dosage: 2 DF, 3X/DAY
     Route: 048
     Dates: end: 201303
  3. PROHEPARUM [Concomitant]
     Dosage: 1 DF, 3X/DAY
     Route: 048
     Dates: end: 201303
  4. GASTER-D [Concomitant]
     Dosage: 1 DF, 2X/DAY
     Route: 048
     Dates: end: 201303
  5. FLUITRAN [Concomitant]
     Dosage: 2 MG, 1X/DAY
     Route: 048
     Dates: end: 201303
  6. METHYCOBAL [Concomitant]
     Dosage: 1 DF, 3X/DAY
     Route: 048
     Dates: end: 201303
  7. PYDOXAL [Concomitant]
     Dosage: 1 DF, 3X/DAY
     Route: 048
     Dates: end: 201303
  8. LYRICA [Concomitant]
     Dosage: 50 MG, 2X/DAY
     Route: 048
     Dates: end: 201303
  9. NU LOTAN [Concomitant]
     Dosage: 50 MG, 1X/DAY
     Route: 048
     Dates: end: 201303
  10. JANUVIA [Concomitant]
     Dosage: 50 MG, 1X/DAY
     Route: 048
     Dates: end: 201303
  11. MAGMITT [Concomitant]
     Dosage: 330 MG, 2X/DAY
     Route: 048

REACTIONS (1)
  - Neuropathy peripheral [Fatal]
